FAERS Safety Report 6241203-3 (Version None)
Quarter: 2009Q2

REPORT INFORMATION
  Report Type: 
  Country: None (occurrence: None)
  Receive Date: 20090619
  Receipt Date: 20090619
  Transmission Date: 20091009
  Serious: No
  Sender: FDA-Public Use
  Company Number: None

PATIENT
  Age: 65 Year
  Sex: Male
  Weight: 90.7194 kg

DRUGS (2)
  1. ZICAM NASAL SPRAY -I NO LONGER HAVE IT- [Suspect]
     Indication: COUGH
     Dosage: SPRAY IN EACH NOSTRIL SEVERAL TIMES A DA NASAL
     Route: 045
  2. ZICAM NASAL SPRAY -I NO LONGER HAVE IT- [Suspect]
     Indication: NASOPHARYNGITIS
     Dosage: SPRAY IN EACH NOSTRIL SEVERAL TIMES A DA NASAL
     Route: 045

REACTIONS (1)
  - HYPOSMIA [None]
